FAERS Safety Report 8585328-6 (Version None)
Quarter: 2012Q3

REPORT INFORMATION
  Report Type: 
  Country: None (occurrence: None)
  Receive Date: 20120810
  Receipt Date: 20120808
  Transmission Date: 20120928
  Serious: Yes (Hospitalization)
  Sender: FDA-Public Use
  Company Number: IT-PFIZER INC-2012194143

PATIENT
  Age: 29 Year
  Sex: Female

DRUGS (3)
  1. CLONAZEPAM [Suspect]
     Indication: EPILEPSY
     Dosage: 1 DF, DAILY
     Route: 048
     Dates: start: 20120101, end: 20120728
  2. SERTRALINE HYDROCHLORIDE [Suspect]
     Indication: BLUNTED AFFECT
     Dosage: 50 MG, DAILY
     Route: 048
     Dates: start: 20120101, end: 20120728
  3. LEVOTHYROXINE SODIUM [Suspect]
     Indication: HYPOTHYROIDISM
     Dosage: 175 UG, 2X/DAY
     Route: 048
     Dates: start: 20120401, end: 20120728

REACTIONS (2)
  - TONIC CLONIC MOVEMENTS [None]
  - SYNCOPE [None]
